FAERS Safety Report 5150068-2 (Version None)
Quarter: 2006Q4

REPORT INFORMATION
  Report Type: 
  Country: None (occurrence: None)
  Receive Date: 20061113
  Receipt Date: 20060801
  Transmission Date: 20070319
  Serious: Yes (Hospitalization)
  Sender: FDA-Public Use
  Company Number: DE-ABBOTT-06P-062-0339458-00

PATIENT
  Age: 29 Year
  Sex: Female
  Weight: 160 kg

DRUGS (6)
  1. REDUCTIL 15MG [Suspect]
     Indication: OBESITY
     Route: 048
     Dates: start: 20060501, end: 20060701
  2. DULCOLAX [Suspect]
     Indication: CONSTIPATION
     Route: 048
     Dates: end: 20060801
  3. LAXATIVES [Concomitant]
     Indication: DRUG USE FOR UNKNOWN INDICATION
  4. BENZODIAZEPINES [Concomitant]
     Indication: DRUG USE FOR UNKNOWN INDICATION
  5. UNSPECIFIED MEDICATIONS [Concomitant]
     Indication: DRUG USE FOR UNKNOWN INDICATION
  6. CAFFEINE [Concomitant]
     Indication: FATIGUE
     Route: 048

REACTIONS (6)
  - ANOREXIA [None]
  - ASTHENIA [None]
  - DRUG ABUSER [None]
  - HYPERHIDROSIS [None]
  - RENAL FAILURE ACUTE [None]
  - SOMNOLENCE [None]
